FAERS Safety Report 6504584-9 (Version None)
Quarter: 2009Q4

REPORT INFORMATION
  Report Type: 
  Country: None (occurrence: None)
  Receive Date: 20091215
  Receipt Date: 20091201
  Transmission Date: 20100525
  Serious: Yes (Death)
  Sender: FDA-Public Use
  Company Number: 120

PATIENT
  Age: 55 Year
  Sex: Female
  Weight: 86.1834 kg

DRUGS (16)
  1. FAZACLO 25 MG ODT AZUR PHARMA (FORMERLY AVANIR PHARMACEUTICALS) [Suspect]
     Indication: SCHIZOPHRENIA
     Dosage: 25 MG PO DAILY
     Route: 048
     Dates: start: 20070130, end: 20070313
  2. COREG [Concomitant]
  3. LISINOPRIL [Concomitant]
  4. LOVENOX [Concomitant]
  5. QUINIDINE HCL [Concomitant]
  6. LASIX [Concomitant]
  7. POTASSIUM CHLORIDE [Concomitant]
  8. ZOCOR [Concomitant]
  9. HYDRALAZINE HCL [Concomitant]
  10. ALBUTEROL NEBULIZER AND INHALER [Concomitant]
  11. DEPAKOTE ER [Concomitant]
  12. HALOPERIDOL DECANOATE [Concomitant]
  13. ASPIRIN [Concomitant]
  14. VASOTEC [Concomitant]
  15. CATAPRES [Concomitant]
  16. INSULIN [Concomitant]

REACTIONS (4)
  - CARDIAC ARREST [None]
  - EMPHYSEMA [None]
  - PULMONARY EMBOLISM [None]
  - TREATMENT NONCOMPLIANCE [None]
